FAERS Safety Report 25186038 (Version 2)
Quarter: 2025Q3

REPORT INFORMATION
  Report Type: Report from Study
  Country: US (occurrence: US)
  Receive Date: 20250410
  Receipt Date: 20250814
  Transmission Date: 20251020
  Serious: No
  Sender: INCYTE
  Company Number: US-EVENT-002286

PATIENT

DRUGS (1)
  1. RUXOLITINIB [Suspect]
     Active Substance: RUXOLITINIB
     Indication: Vitiligo
     Dosage: UNK, BID
     Route: 065

REACTIONS (3)
  - Therapeutic product effect delayed [Unknown]
  - Therapeutic product effect incomplete [Unknown]
  - Product availability issue [Unknown]
